FAERS Safety Report 6287134-4 (Version None)
Quarter: 2009Q3

REPORT INFORMATION
  Report Type: 
  Country: None (occurrence: None)
  Receive Date: 20090724
  Receipt Date: 20090713
  Transmission Date: 20100115
  Serious: Yes (Hospitalization)
  Sender: FDA-Public Use
  Company Number: CERZ-1000670

PATIENT
  Age: 14 Year
  Sex: Male

DRUGS (1)
  1. CEREZYME [Suspect]
     Indication: GAUCHER'S DISEASE

REACTIONS (6)
  - ABDOMINAL PAIN [None]
  - ANXIETY [None]
  - HYPERTENSION [None]
  - PLATELET COUNT DECREASED [None]
  - SPLEEN DISORDER [None]
  - SPLENOMEGALY [None]
